FAERS Safety Report 18522899 (Version 4)
Quarter: 2022Q4

REPORT INFORMATION
  Report Type: Spontaneous
  Country: US (occurrence: US)
  Receive Date: 20201119
  Receipt Date: 20221024
  Transmission Date: 20230113
  Serious: Yes (Other)
  Sender: FDA-Public Use
  Company Number: US-PFIZER INC-2020453611

PATIENT
  Age: 60 Year
  Sex: Male

DRUGS (7)
  1. INLYTA [Suspect]
     Active Substance: AXITINIB
     Indication: Renal cancer
     Dosage: 5 MG, 2X/DAY (1 TABLET EVERY 12 HOURS TAKE WHOLE WITH WATER)
     Route: 048
     Dates: start: 202010
  2. INLYTA [Suspect]
     Active Substance: AXITINIB
     Indication: Renal cancer
     Dosage: 5 MG, 2X/DAY (1 TABLET EVERY 12 HOURS TAKE WHOLE WITH WATER)
     Route: 048
  3. INLYTA [Suspect]
     Active Substance: AXITINIB
     Dosage: 5 MG, 2X/DAY (1 TABLET EVERY 12 HOURS TAKE WHOLE WITH WATER)
     Route: 048
  4. OMEGA 3 FISH OIL [FISH OIL] [Concomitant]
     Dosage: UNK
  5. METFORMIN HYDROCHLORIDE [Concomitant]
     Active Substance: METFORMIN HYDROCHLORIDE
     Dosage: UNK
  6. VITAMIN D3 [Concomitant]
     Active Substance: CHOLECALCIFEROL
     Dosage: UNK
  7. LEVOTHYROXINE SODIUM [Concomitant]
     Active Substance: LEVOTHYROXINE SODIUM
     Dosage: UNK

REACTIONS (10)
  - Neoplasm progression [Unknown]
  - Fatigue [Unknown]
  - Bone pain [Unknown]
  - Headache [Unknown]
  - Arthralgia [Unknown]
  - Pruritus [Unknown]
  - Decreased appetite [Recovered/Resolved]
  - Rash [Unknown]
  - Asthenia [Recovered/Resolved]
  - Dizziness [Unknown]

NARRATIVE: CASE EVENT DATE: 20200101
